FAERS Safety Report 20723856 (Version 1)
Quarter: 2022Q2

REPORT INFORMATION
  Report Type: Report from Study
  Country: US (occurrence: US)
  Receive Date: 20220419
  Receipt Date: 20220419
  Transmission Date: 20220721
  Serious: Yes (Hospitalization, Other)
  Sender: FDA-Public Use
  Company Number: US-CELLTRION INC.-2022US004810

PATIENT

DRUGS (4)
  1. RITUXIMAB [Suspect]
     Active Substance: RITUXIMAB
     Indication: Chronic lymphocytic leukaemia
     Dosage: 544 MILLIGRAM
     Route: 042
     Dates: start: 20220303
  2. RITUXIMAB [Suspect]
     Active Substance: RITUXIMAB
     Dosage: 725 MILLIGRAM (CYCLE 2 DAY 1)
     Route: 042
     Dates: start: 20220406
  3. BENDAMUSTINE [Suspect]
     Active Substance: BENDAMUSTINE
     Indication: Chronic lymphocytic leukaemia
     Dosage: 130 MILLIGRAM
     Route: 042
     Dates: start: 20220303
  4. BENDAMUSTINE [Suspect]
     Active Substance: BENDAMUSTINE
     Dosage: 125 MILLIGRAM (CYCLE 2 DAY 1)
     Route: 042
     Dates: start: 20220406

REACTIONS (3)
  - Pyrexia [Not Recovered/Not Resolved]
  - Oropharyngeal pain [Not Recovered/Not Resolved]
  - Headache [Not Recovered/Not Resolved]

NARRATIVE: CASE EVENT DATE: 20220407
